FAERS Safety Report 15716832 (Version 1)
Quarter: 2018Q4

REPORT INFORMATION
  Report Type: Spontaneous
  Country: US (occurrence: US)
  Receive Date: 20181212
  Receipt Date: 20181212
  Transmission Date: 20190205
  Serious: Yes (Other)
  Sender: FDA-Public Use
  Company Number: None

PATIENT
  Age: 41 Year
  Sex: Female
  Weight: 67.5 kg

DRUGS (1)
  1. GABAPENTIN. [Suspect]
     Active Substance: GABAPENTIN
     Indication: NEURALGIA
     Route: 048
     Dates: start: 20171129, end: 20180518

REACTIONS (28)
  - Constipation [None]
  - Dyspepsia [None]
  - Dysphagia [None]
  - Dysgeusia [None]
  - Withdrawal syndrome [None]
  - Fall [None]
  - Labyrinthitis [None]
  - Anxiety [None]
  - Hypertension [None]
  - Ataxia [None]
  - Depression [None]
  - Apathy [None]
  - Insomnia [None]
  - Restlessness [None]
  - Weight increased [None]
  - Joint stiffness [None]
  - Coordination abnormal [None]
  - Dyskinesia [None]
  - Dry eye [None]
  - Fatigue [None]
  - Asthenia [None]
  - Formication [None]
  - Paranoia [None]
  - Anorgasmia [None]
  - Amnesia [None]
  - Abdominal pain [None]
  - Loss of libido [None]
  - Trigeminal neuralgia [None]

NARRATIVE: CASE EVENT DATE: 20180301
